FAERS Safety Report 8673069 (Version 3)
Quarter: 2012Q4

REPORT INFORMATION
  Report Type: Report from Study
  Country: DK (occurrence: DK)
  Receive Date: 20120719
  Receipt Date: 20120921
  Transmission Date: 20130627
  Serious: Yes (Congenital Anomaly)
  Sender: FDA-Public Use
  Company Number: DK-ROCHE-1087229

PATIENT
  Age: 0 Year
  Sex: Male

DRUGS (3)
  1. ROACTEMRA [Suspect]
     Indication: RHEUMATOID ARTHRITIS
     Dosage: Last dose prior to SAE: 29/Nov/2010
     Route: 064
     Dates: start: 20090407
  2. PREDNISOLONE [Concomitant]
     Route: 065
     Dates: start: 20110309, end: 20110810
  3. METHOTREXATE [Suspect]
     Indication: RHEUMATOID ARTHRITIS
     Dosage: Last dose prior to SAE: 03/Jan/2011
     Route: 064
     Dates: start: 20090407

REACTIONS (2)
  - Polydactyly [Not Recovered/Not Resolved]
  - Maternal exposure timing unspecified [Unknown]
